FAERS Safety Report 20160707 (Version 2)
Quarter: 2021Q4

REPORT INFORMATION
  Report Type: Spontaneous
  Country: CA (occurrence: CA)
  Receive Date: 20211208
  Receipt Date: 20211214
  Transmission Date: 20220303
  Serious: Yes (Other)
  Sender: FDA-Public Use
  Company Number: CA-LEO Pharma-339852

PATIENT
  Age: 69 Year

DRUGS (12)
  1. PROTOPIC [Suspect]
     Active Substance: TACROLIMUS
     Indication: Erythema
     Route: 061
     Dates: start: 20211118, end: 20211119
  2. PROTOPIC [Suspect]
     Active Substance: TACROLIMUS
     Indication: Pruritus
     Route: 061
     Dates: start: 20211118, end: 20211119
  3. FINACEA [Suspect]
     Active Substance: AZELAIC ACID
     Indication: Erythema
     Dosage: ON FACE
     Route: 061
     Dates: start: 20211117
  4. FINACEA [Suspect]
     Active Substance: AZELAIC ACID
     Indication: Pruritus
     Dosage: ON FACE
     Route: 061
     Dates: start: 20211117
  5. FINACEA [Suspect]
     Active Substance: AZELAIC ACID
     Indication: Erythema
     Dosage: ON FACE
     Route: 061
     Dates: start: 20211117
  6. FINACEA [Suspect]
     Active Substance: AZELAIC ACID
     Indication: Pruritus
     Dosage: ON FACE
     Route: 061
     Dates: start: 20211117
  7. PROTOPIC [Suspect]
     Active Substance: TACROLIMUS
     Indication: Erythema
     Route: 061
     Dates: start: 20211118, end: 20211119
  8. PROTOPIC [Suspect]
     Active Substance: TACROLIMUS
     Indication: Pruritus
     Route: 061
     Dates: start: 20211118, end: 20211119
  9. PROTOPIC [Suspect]
     Active Substance: TACROLIMUS
     Indication: Erythema
     Route: 061
     Dates: start: 20211118, end: 20211119
  10. PROTOPIC [Suspect]
     Active Substance: TACROLIMUS
     Indication: Pruritus
     Route: 061
     Dates: start: 20211118, end: 20211119
  11. FINACEA [Suspect]
     Active Substance: AZELAIC ACID
     Indication: Erythema
     Dosage: ON FACE
     Route: 061
     Dates: start: 20211117
  12. FINACEA [Suspect]
     Active Substance: AZELAIC ACID
     Indication: Pruritus
     Dosage: ON FACE
     Route: 061
     Dates: start: 20211117

REACTIONS (18)
  - Swelling face [Recovering/Resolving]
  - Insomnia [Recovering/Resolving]
  - Skin mass [Recovering/Resolving]
  - Swelling face [Recovering/Resolving]
  - Insomnia [Recovering/Resolving]
  - Hot flush [Recovering/Resolving]
  - Pruritus [Unknown]
  - Eye swelling [Recovering/Resolving]
  - Skin irritation [Recovering/Resolving]
  - Eye swelling [Recovering/Resolving]
  - Hot flush [Recovering/Resolving]
  - Skin irritation [Recovering/Resolving]
  - Skin burning sensation [Recovering/Resolving]
  - Ocular hyperaemia [Recovering/Resolving]
  - Ocular hyperaemia [Recovering/Resolving]
  - Skin burning sensation [Unknown]
  - Skin mass [Recovering/Resolving]
  - Skin burning sensation [Recovering/Resolving]

NARRATIVE: CASE EVENT DATE: 20211118
